FAERS Safety Report 7415902-1 (Version None)
Quarter: 2011Q2

REPORT INFORMATION
  Report Type: 
  Country: None (occurrence: None)
  Receive Date: 20110414
  Receipt Date: 20110412
  Transmission Date: 20111010
  Serious: Yes (Death)
  Sender: FDA-Public Use
  Company Number: PHHY2011MY12904

PATIENT
  Age: 27 Year
  Sex: Female

DRUGS (1)
  1. GLEEVEC [Suspect]
     Indication: BLAST CRISIS IN MYELOGENOUS LEUKAEMIA

REACTIONS (2)
  - NEUTROPENIC SEPSIS [None]
  - BLAST CRISIS IN MYELOGENOUS LEUKAEMIA [None]
